FAERS Safety Report 7820798-X (Version None)
Quarter: 2011Q4

REPORT INFORMATION
  Report Type: 
  Country: None (occurrence: None)
  Receive Date: 20111018
  Receipt Date: 20111010
  Transmission Date: 20120403
  Serious: Yes (Hospitalization, Disabling)
  Sender: FDA-Public Use
  Company Number: US-MERCK-1105USA00583

PATIENT
  Age: 66 Year
  Sex: Female

DRUGS (2)
  1. CENTRUM [Concomitant]
     Route: 065
  2. FOSAMAX [Suspect]
     Indication: OSTEOPENIA
     Route: 048
     Dates: start: 19990101, end: 20071119

REACTIONS (13)
  - FALL [None]
  - ADRENAL MASS [None]
  - FEMUR FRACTURE [None]
  - FRACTURE NONUNION [None]
  - OSTEOARTHRITIS [None]
  - GALLBLADDER DISORDER [None]
  - BLOOD CHOLESTEROL ABNORMAL [None]
  - CHEST PAIN [None]
  - THYROID NEOPLASM [None]
  - ATELECTASIS [None]
  - TOOTH EXTRACTION [None]
  - GOITRE [None]
  - HYPERTENSION [None]
